FAERS Safety Report 15459142 (Version 1)
Quarter: 2018Q4

REPORT INFORMATION
  Report Type: Spontaneous
  Country: US (occurrence: US)
  Receive Date: 20181003
  Receipt Date: 20181003
  Transmission Date: 20190204
  Serious: No
  Sender: FDA-Public Use
  Company Number: US-SA-2018SA272517

PATIENT
  Sex: Female

DRUGS (1)
  1. DULCOEASE [Suspect]
     Active Substance: DOCUSATE SODIUM

REACTIONS (2)
  - Product tampering [Unknown]
  - Drug ineffective [Unknown]
